FAERS Safety Report 21083592 (Version 2)
Quarter: 2022Q3

REPORT INFORMATION
  Report Type: Spontaneous
  Country: PT (occurrence: PT)
  Receive Date: 20220714
  Receipt Date: 20220817
  Transmission Date: 20221027
  Serious: Yes (Other)
  Sender: FDA-Public Use
  Company Number: PT-PFM-2022-05666

PATIENT
  Age: 67 Year
  Sex: Male

DRUGS (2)
  1. BRAFTOVI [Suspect]
     Active Substance: ENCORAFENIB
     Indication: Adenocarcinoma
     Dosage: UNK
     Route: 065
     Dates: start: 202012
  2. CETUXIMAB [Suspect]
     Active Substance: CETUXIMAB
     Indication: Adenocarcinoma
     Dosage: UNK
     Route: 065
     Dates: start: 202012

REACTIONS (8)
  - Cataract [Recovering/Resolving]
  - Rash pustular [Recovering/Resolving]
  - Hypomagnesaemia [Recovered/Resolved]
  - Compression fracture [Unknown]
  - Back pain [Unknown]
  - Osteopenia [Unknown]
  - Arthralgia [Recovering/Resolving]
  - Melanocytic naevus [Recovering/Resolving]

NARRATIVE: CASE EVENT DATE: 20210301
